FAERS Safety Report 4483520-3 (Version None)
Quarter: 2004Q4

REPORT INFORMATION
  Report Type: 
  Country: None (occurrence: None)
  Receive Date: 20041019
  Receipt Date: 20041019
  Transmission Date: 20050328
  Serious: Yes (Other)
  Sender: FDA-Public Use
  Company Number: None

PATIENT
  Sex: Male

DRUGS (7)
  1. GABAPENTIN [Suspect]
     Indication: NEUROPATHIC PAIN
     Dosage: 300 MG HS ORAL
     Route: 048
     Dates: start: 20040713, end: 20040718
  2. OXYCODONE AND ACETAMINOPHEN [Concomitant]
  3. TRAZODONE HCL [Concomitant]
  4. PAROXETINE [Concomitant]
  5. PROPOXYPHENE/APAP [Concomitant]
  6. PHENYTOIN [Concomitant]
  7. ASPIRIN [Concomitant]

REACTIONS (2)
  - CARDIAC FLUTTER [None]
  - DYSPNOEA [None]
